FAERS Safety Report 8013262-9 (Version None)
Quarter: 2011Q4

REPORT INFORMATION
  Report Type: 
  Country: None (occurrence: None)
  Receive Date: 20111229
  Receipt Date: 20111229
  Transmission Date: 20120403
  Serious: Yes (Other)
  Sender: FDA-Public Use
  Company Number: None

PATIENT
  Age: 77 Year
  Sex: Female
  Weight: 56.699 kg

DRUGS (2)
  1. NAVELBINE [Suspect]
     Indication: BREAST CANCER
     Dosage: 41MG
     Route: 041
     Dates: start: 20110714, end: 20110922
  2. HERCEPTIN [Concomitant]
     Dosage: 357MG
     Route: 041
     Dates: start: 20110929, end: 20111020

REACTIONS (1)
  - NEUROLOGICAL DECOMPENSATION [None]
